FAERS Safety Report 6975779-5 (Version None)
Quarter: 2010Q3

REPORT INFORMATION
  Report Type: 
  Country: None (occurrence: None)
  Receive Date: 20100910
  Receipt Date: 20090401
  Transmission Date: 20110219
  Serious: No
  Sender: FDA-Public Use
  Company Number: US-WYE-H08799909

PATIENT
  Sex: Female
  Weight: 74.91 kg

DRUGS (8)
  1. PRISTIQ [Suspect]
     Indication: DEPRESSION
     Route: 048
     Dates: start: 20090318, end: 20090328
  2. PRISTIQ [Suspect]
     Route: 048
     Dates: start: 20090331
  3. SYNTHROID [Concomitant]
  4. PRILOSEC [Concomitant]
  5. SODIUM CHLORIDE [Concomitant]
  6. NORETHINDRONE/ETHINYL ESTRADIOL [Concomitant]
  7. PROVIGIL [Concomitant]
  8. FLUDROCORTISONE [Concomitant]

REACTIONS (8)
  - DIARRHOEA [None]
  - DISORIENTATION [None]
  - DIZZINESS [None]
  - DRUG WITHDRAWAL SYNDROME [None]
  - FLATULENCE [None]
  - FREQUENT BOWEL MOVEMENTS [None]
  - NAUSEA [None]
  - PARAESTHESIA [None]
